FAERS Safety Report 4731451-3 (Version None)
Quarter: 2005Q3

REPORT INFORMATION
  Report Type: 
  Country: None (occurrence: None)
  Receive Date: 20050801
  Receipt Date: 20050801
  Transmission Date: 20060218
  Serious: Yes (Life-Threatening, Hospitalization)
  Sender: FDA-Public Use
  Company Number: None

PATIENT
  Sex: Female
  Weight: 77.1115 kg

DRUGS (8)
  1. NOVANTRONE [Suspect]
     Indication: SECONDARY PROGRESSIVE MULTIPLE SCLEROSIS
     Dosage: RECOMMENDED EVERY 3 MOS INTRAVENOUS
     Route: 042
     Dates: start: 20030101, end: 20050324
  2. SYNTHROID [Concomitant]
  3. ESTRADIOL [Concomitant]
  4. EFFEXOR XR [Concomitant]
  5. TRAZADONE [Concomitant]
  6. NEURONTIN [Concomitant]
  7. CLONAZEPAM [Concomitant]
  8. IBUPROFEN [Concomitant]

REACTIONS (4)
  - CARDIAC FAILURE CONGESTIVE [None]
  - CONGESTIVE CARDIOMYOPATHY [None]
  - IATROGENIC INJURY [None]
  - PHARMACEUTICAL PRODUCT COMPLAINT [None]
